FAERS Safety Report 22186282 (Version 9)
Quarter: 2023Q4

REPORT INFORMATION
  Report Type: Report from Study
  Country: DE (occurrence: DE)
  Receive Date: 20230407
  Receipt Date: 20231207
  Transmission Date: 20240109
  Serious: Yes (Hospitalization)
  Sender: FDA-Public Use
  Company Number: DE-SA-SAC20230404000256

PATIENT
  Age: 62 Year
  Sex: Male
  Weight: 67 kg

DRUGS (12)
  1. ISATUXIMAB [Suspect]
     Active Substance: ISATUXIMAB
     Indication: Plasma cell myeloma
     Dosage: 680 MG
     Route: 042
     Dates: start: 20220104, end: 20220104
  2. ISATUXIMAB [Suspect]
     Active Substance: ISATUXIMAB
     Dosage: 680 MG
     Route: 042
     Dates: start: 20230323, end: 20230323
  3. ISATUXIMAB [Suspect]
     Active Substance: ISATUXIMAB
     Dosage: 680 MG
     Route: 042
     Dates: start: 20230615, end: 20230615
  4. CARFILZOMIB [Suspect]
     Active Substance: CARFILZOMIB
     Indication: Plasma cell myeloma
     Dosage: 82 MG
     Route: 042
     Dates: start: 20220104, end: 20220104
  5. CARFILZOMIB [Suspect]
     Active Substance: CARFILZOMIB
     Dosage: 82 MG
     Route: 042
     Dates: start: 20230323, end: 20230323
  6. CARFILZOMIB [Suspect]
     Active Substance: CARFILZOMIB
     Dosage: 102 MG
     Route: 042
     Dates: start: 20230622, end: 20230622
  7. LENALIDOMIDE [Suspect]
     Active Substance: LENALIDOMIDE
     Indication: Plasma cell myeloma
     Dosage: 15 MG
     Route: 048
     Dates: start: 20220104, end: 20220104
  8. LENALIDOMIDE [Suspect]
     Active Substance: LENALIDOMIDE
     Dosage: 15 MG
     Route: 048
     Dates: start: 20230329, end: 20230329
  9. LENALIDOMIDE [Suspect]
     Active Substance: LENALIDOMIDE
     Dosage: 15 MG
     Route: 048
     Dates: start: 20230625, end: 20230625
  10. DEXAMETHASONE [Concomitant]
     Active Substance: DEXAMETHASONE
     Indication: Plasma cell myeloma
     Dosage: 40 MG
     Route: 042
     Dates: start: 20230323, end: 20230323
  11. DEXAMETHASONE [Concomitant]
     Active Substance: DEXAMETHASONE
     Dosage: 40 MG
     Route: 042
     Dates: start: 20220104, end: 20220104
  12. DEXAMETHASONE [Concomitant]
     Active Substance: DEXAMETHASONE
     Dosage: 40 MG
     Route: 042
     Dates: start: 20230622, end: 20230622

REACTIONS (2)
  - Thrombocytopenia [Recovered/Resolved]
  - Dyspnoea [Recovered/Resolved]

NARRATIVE: CASE EVENT DATE: 20230330
